FAERS Safety Report 20862310 (Version 3)
Quarter: 2022Q3

REPORT INFORMATION
  Report Type: Spontaneous
  Country: US (occurrence: US)
  Receive Date: 20220523
  Receipt Date: 20220803
  Transmission Date: 20221026
  Serious: Yes (Other)
  Sender: FDA-Public Use
  Company Number: US-ORGANON-O2205USA001524

PATIENT
  Age: 31 Year
  Sex: Female
  Weight: 114.47 kg

DRUGS (10)
  1. NEXPLANON [Suspect]
     Active Substance: ETONOGESTREL
     Indication: Contraception
     Dosage: 1 IMPLANT
     Route: 058
     Dates: start: 201811, end: 20220517
  2. NEXPLANON [Suspect]
     Active Substance: ETONOGESTREL
     Dosage: 1 IMPLANT
     Route: 058
     Dates: start: 20220517
  3. NEXPLANON [Suspect]
     Active Substance: ETONOGESTREL
     Indication: Contraception
     Dosage: 1 IMPLANT
     Route: 058
     Dates: start: 20220517, end: 20220517
  4. PREDNISONE [Concomitant]
     Active Substance: PREDNISONE
     Dosage: 1 TABLET ORALLY ONCE A DAY
     Route: 048
  5. RIZATRIPTAN BENZOATE [Concomitant]
     Active Substance: RIZATRIPTAN BENZOATE
     Indication: Headache
     Dosage: DISINTEGRATING TABLET ORALLY DISOLVED TABLET UNDER THE TONGUE AT HEADACHE ONSET AND MAY REPEAT 2 HOU
     Route: 048
  6. ACETAZOLAMIDE [Concomitant]
     Active Substance: ACETAZOLAMIDE
     Dosage: 12 HOUR 2 CAPSULES ORALLY 2 TIMES A DAY
     Route: 048
  7. CYCLOBENZAPRINE HYDROCHLORIDE [Concomitant]
     Active Substance: CYCLOBENZAPRINE HYDROCHLORIDE
     Dosage: 1 TABLET AT BEDTIME ORALLY ONCE A DAY
     Route: 048
  8. IBUPROFEN [Concomitant]
     Active Substance: IBUPROFEN
     Dosage: 1 TABLET WITH FOOD OR MILK AS NEEDED ORALLY THREE TIMES A DAY
     Route: 048
  9. MELOXICAM [Concomitant]
     Active Substance: MELOXICAM
     Dosage: 1 TABLET ORALLY ONCE A DAY
     Route: 048
  10. TOPIRAMATE [Concomitant]
     Active Substance: TOPIRAMATE
     Dosage: 1 TABLET ORALLY AT BEDTIME (NOTES: 50MG)
     Route: 048

REACTIONS (4)
  - Device expulsion [Recovered/Resolved]
  - Device dislocation [Not Recovered/Not Resolved]
  - Incorrect product administration duration [Unknown]
  - No adverse event [Unknown]

NARRATIVE: CASE EVENT DATE: 20211101
